FAERS Safety Report 5895824-8 (Version None)
Quarter: 2008Q3

REPORT INFORMATION
  Report Type: 
  Country: None (occurrence: None)
  Receive Date: 20080828
  Receipt Date: 20080702
  Transmission Date: 20090109
  Serious: Yes (Other)
  Sender: FDA-Public Use
  Company Number: 200814084US

PATIENT
  Sex: Male

DRUGS (15)
  1. LASIX [Suspect]
     Dates: start: 20070101, end: 20070101
  2. BLOOD PRESSURE PILLS [Concomitant]
  3. INSULIN [Concomitant]
  4. ASPIRIN [Concomitant]
  5. LANTUS [Concomitant]
  6. APIDRA [Concomitant]
  7. THYROID (ARMOUR THYROID) [Concomitant]
  8. LEVOTHYROXINE SODIUM, LIOTHYRONINE SODIUM (THYROLAR) [Concomitant]
  9. TESTOSTERONE (ANDROGEL) [Concomitant]
  10. ARIMIDEX [Concomitant]
  11. ENALAPRIL MALEATE [Concomitant]
  12. METOPROLOL TARTRATE [Concomitant]
  13. CLOPIDOGREL (PLAVIX /01220701/) [Concomitant]
  14. TRADITIONAL CHINESE MEDICINE [Concomitant]
  15. SUPPLEMENTS NOS [Concomitant]

REACTIONS (5)
  - BLOOD CREATININE INCREASED [None]
  - BLOOD UREA INCREASED [None]
  - PRURITUS [None]
  - RASH MACULAR [None]
  - RENAL IMPAIRMENT [None]
